FAERS Safety Report 16586170 (Version 1)
Quarter: 2019Q3

REPORT INFORMATION
  Report Type: Spontaneous
  Country: IT (occurrence: IT)
  Receive Date: 20190717
  Receipt Date: 20190717
  Transmission Date: 20191004
  Serious: Yes (Hospitalization, Other)
  Sender: FDA-Public Use
  Company Number: IT-MYLANLABS-2019M1066889

PATIENT
  Age: 32 Year
  Sex: Male

DRUGS (6)
  1. ENANTONE LP [Suspect]
     Active Substance: LEUPROLIDE ACETATE
     Indication: SUPPLEMENTATION THERAPY
     Dosage: 500 MILLIGRAM, QD
     Route: 030
  2. TESTOSTERONE ENANTHATE. [Concomitant]
     Active Substance: TESTOSTERONE ENANTHATE
     Indication: PRODUCT USED FOR UNKNOWN INDICATION
     Dosage: 500 MILLIGRAM, QW
     Route: 030
  3. IBUPROFEN. [Suspect]
     Active Substance: IBUPROFEN
     Indication: PAIN IN EXTREMITY
  4. STANOZOLOL [Suspect]
     Active Substance: STANOZOLOL
     Indication: SUPPLEMENTATION THERAPY
     Dosage: 2 MILLIGRAM/KILOGRAM
     Route: 048
  5. MESTEROLONE [Concomitant]
     Active Substance: MESTEROLONE
     Indication: LIBIDO DECREASED
     Route: 065
  6. IBUPROFEN. [Suspect]
     Active Substance: IBUPROFEN
     Indication: BACK PAIN
     Dosage: 600 MILLIGRAM, QD
     Route: 065

REACTIONS (7)
  - Focal segmental glomerulosclerosis [Recovering/Resolving]
  - Hypertension [Recovering/Resolving]
  - End stage renal disease [Recovering/Resolving]
  - Ventricular hypokinesia [Recovering/Resolving]
  - Nephrotic syndrome [Recovering/Resolving]
  - Drug abuse [Recovering/Resolving]
  - Cardiomegaly [Recovering/Resolving]
